FAERS Safety Report 5578876-4 (Version None)
Quarter: 2007Q4

REPORT INFORMATION
  Report Type: 
  Country: None (occurrence: None)
  Receive Date: 20071228
  Receipt Date: 20071213
  Transmission Date: 20080405
  Serious: Yes (Hospitalization)
  Sender: FDA-Public Use
  Company Number: 2007-05795

PATIENT
  Sex: Female

DRUGS (1)
  1. QUININE SULFATE (WATSON LABORATORIES)(QUININE SULFATE) UNKOWN [Suspect]
     Indication: MUSCLE SPASMS
     Dosage: 260 MG, QHS, ORAL
     Route: 048
     Dates: start: 20020817, end: 20041101

REACTIONS (2)
  - DEEP VEIN THROMBOSIS [None]
  - THROMBOCYTOPENIA [None]
